FAERS Safety Report 10423363 (Version 1)
Quarter: 2014Q3

REPORT INFORMATION
  Report Type: Spontaneous
  Country: US (occurrence: None)
  Receive Date: 20140722
  Receipt Date: 20140722
  Transmission Date: 20150326
  Serious: No
  Sender: FDA-Public Use
  Company Number: AEGR000400

PATIENT
  Age: 67 Year
  Sex: Male
  Weight: 115.6 kg

DRUGS (17)
  1. LASIX [Concomitant]
     Active Substance: FUROSEMIDE
  2. NEXIUM [Concomitant]
     Active Substance: ESOMEPRAZOLE MAGNESIUM
  3. VITAMIN E [Concomitant]
     Active Substance: .ALPHA.-TOCOPHEROL
  4. RANEXA (RANOLAZINE) [Concomitant]
  5. JUXTAPID [Suspect]
     Active Substance: LOMITAPIDE MESYLATE
     Indication: TYPE IIA HYPERLIPIDAEMIA
     Route: 048
     Dates: start: 20140405
  6. DILANTIN (PHENYTOIN) [Concomitant]
  7. DOXAZOSIN (DOXAZOSIN MESILATE) [Concomitant]
  8. OMEGA 3-6-9 (FISH OIL, TOCOPHEROL) [Concomitant]
  9. CRESTOR [Suspect]
     Active Substance: ROSUVASTATIN CALCIUM
     Indication: PRODUCT USED FOR UNKNOWN INDICATION
     Route: 048
     Dates: start: 20140405
  10. AMLODIPINE (AMLODIPINE BESILATE) [Concomitant]
  11. CILOSTAZOL. [Concomitant]
     Active Substance: CILOSTAZOL
  12. NOVOLOG [Concomitant]
     Active Substance: INSULIN ASPART
  13. ISOSORBIDE DINITRATE. [Concomitant]
     Active Substance: ISOSORBIDE DINITRATE
  14. GEMFIBROZIL. [Concomitant]
     Active Substance: GEMFIBROZIL
  15. FENOFIBRATE. [Concomitant]
     Active Substance: FENOFIBRATE
  16. JANUVIA [Concomitant]
     Active Substance: SITAGLIPTIN PHOSPHATE
  17. METOPROLOL [Concomitant]
     Active Substance: METOPROLOL

REACTIONS (5)
  - Hyperhidrosis [None]
  - Asthenia [None]
  - Headache [None]
  - Weight decreased [None]
  - Dizziness [None]

NARRATIVE: CASE EVENT DATE: 20140408
